FAERS Safety Report 20745154 (Version 1)
Quarter: 2022Q2

REPORT INFORMATION
  Report Type: Report from Study
  Country: AR (occurrence: AR)
  Receive Date: 20220425
  Receipt Date: 20220425
  Transmission Date: 20220720
  Serious: Yes (Other)
  Sender: FDA-Public Use
  Company Number: AR-NOVARTISPH-NVSC2022AR092414

PATIENT
  Sex: Male

DRUGS (3)
  1. TRAVATAN [Suspect]
     Active Substance: TRAVOPROST
     Indication: Ocular hypertension
     Dosage: UNK UNK, QD (1 OF 00.4ML IN EACH EYE)
     Route: 065
     Dates: start: 2002
  2. TRAVATAN [Suspect]
     Active Substance: TRAVOPROST
     Indication: Maculopathy
  3. HYDROCHLOROTHIAZIDE\VALSARTAN [Suspect]
     Active Substance: HYDROCHLOROTHIAZIDE\VALSARTAN
     Indication: Hypertension
     Dosage: 1 DOSAGE FORM, QD (1 OF 80/12.5MG)
     Route: 065
     Dates: start: 2007

REACTIONS (2)
  - Cataract [Not Recovered/Not Resolved]
  - Product use in unapproved indication [Unknown]

NARRATIVE: CASE EVENT DATE: 20210101
